FAERS Safety Report 11112013 (Version 1)
Quarter: 2015Q2

REPORT INFORMATION
  Report Type: Spontaneous
  Country: None (occurrence: None)
  Receive Date: 20150513
  Receipt Date: 20150513
  Transmission Date: 20150821
  Serious: No
  Sender: FDA-Public Use
  Company Number: None

PATIENT
  Age: 25 Year
  Sex: Female
  Weight: 61.24 kg

DRUGS (8)
  1. NASONEX [Concomitant]
     Active Substance: MOMETASONE FUROATE
  2. ZYRTEC [Concomitant]
     Active Substance: CETIRIZINE HYDROCHLORIDE
  3. WOMENS ONE A DAY MULTIVITAMIN [Concomitant]
  4. ALBUTEROL INHALER [Concomitant]
     Active Substance: ALBUTEROL
  5. BENADRYL [Concomitant]
     Active Substance: DIPHENHYDRAMINE HYDROCHLORIDE
  6. TYLENOL [Concomitant]
     Active Substance: ACETAMINOPHEN
  7. ESTROGEL [Suspect]
     Active Substance: ESTRADIOL
     Indication: BLOOD OESTROGEN DECREASED
     Dosage: 2 PUMPS (1 ON EACH ARM) APPLIED TO A SURFACE, USUALLY THE SKIN
     Dates: start: 20150511, end: 20150511
  8. NEXPLANON [Concomitant]
     Active Substance: ETONOGESTREL

REACTIONS (4)
  - Application site pain [None]
  - Application site paraesthesia [None]
  - Application site rash [None]
  - Rash erythematous [None]

NARRATIVE: CASE EVENT DATE: 20150511
